FAERS Safety Report 19434101 (Version 2)
Quarter: 2021Q2

REPORT INFORMATION
  Report Type: Spontaneous
  Country: US (occurrence: US)
  Receive Date: 20210618
  Receipt Date: 20210624
  Transmission Date: 20210717
  Serious: Yes (Life-Threatening, Hospitalization)
  Sender: FDA-Public Use
  Company Number: US-JNJFOC-20210626557

PATIENT
  Sex: Male

DRUGS (1)
  1. PARACETAMOL [Suspect]
     Active Substance: ACETAMINOPHEN
     Indication: DISCOMFORT
     Dosage: 1000MG 1?2 TIMES PER DAY
     Route: 064

REACTIONS (5)
  - Respiratory failure [Unknown]
  - Ductus arteriosus premature closure [Unknown]
  - Pulmonary hypertension [Unknown]
  - Right ventricular dysfunction [Unknown]
  - Foetal exposure during pregnancy [Unknown]
